FAERS Safety Report 6023236-5 (Version None)
Quarter: 2008Q4

REPORT INFORMATION
  Report Type: 
  Country: None (occurrence: None)
  Receive Date: 20081224
  Receipt Date: 20081224
  Transmission Date: 20090506
  Serious: Yes (Other)
  Sender: FDA-Public Use
  Company Number: None

PATIENT
  Age: 42 Year
  Sex: Female
  Weight: 90.7194 kg

DRUGS (1)
  1. MIRENA [Suspect]
     Indication: CONTRACEPTION
     Dates: start: 20060930, end: 20071201

REACTIONS (5)
  - IRRITABILITY [None]
  - PREMENSTRUAL SYNDROME [None]
  - UTERINE PAIN [None]
  - VAGINAL HAEMORRHAGE [None]
  - WEIGHT INCREASED [None]
